FAERS Safety Report 20131308 (Version 1)
Quarter: 2021Q4

REPORT INFORMATION
  Report Type: Spontaneous
  Country: US (occurrence: None)
  Receive Date: 20211130
  Receipt Date: 20211130
  Transmission Date: 20220303
  Serious: Yes (Hospitalization)
  Sender: FDA-Public Use
  Company Number: None

PATIENT
  Age: 56 Year
  Sex: Female
  Weight: 119.7 kg

DRUGS (20)
  1. CASIRIVIMAB\IMDEVIMAB [Suspect]
     Active Substance: CASIRIVIMAB\IMDEVIMAB
     Indication: COVID-19
     Dosage: OTHER FREQUENCY : ONCE;?
     Route: 042
     Dates: start: 20211124, end: 20211124
  2. DEXAMETHASONE [Concomitant]
     Active Substance: DEXAMETHASONE
     Dates: start: 20211126, end: 20211128
  3. ALBUTEROL [Concomitant]
     Active Substance: ALBUTEROL
     Dates: start: 20211122, end: 20211128
  4. ONDANSETRON [Concomitant]
     Active Substance: ONDANSETRON
     Dates: start: 20211124, end: 20211128
  5. TRAMADOL [Concomitant]
     Active Substance: TRAMADOL
     Dates: start: 20211120, end: 20211127
  6. HEPARIN [Concomitant]
     Active Substance: HEPARIN SODIUM
     Dates: start: 20211127, end: 20211127
  7. FENTANYL [Concomitant]
     Active Substance: FENTANYL
     Dates: start: 20211127, end: 20211128
  8. VASOPRESSIN [Concomitant]
     Active Substance: VASOPRESSIN
     Dates: start: 20211127, end: 20211128
  9. NOREPINEPHRINE [Concomitant]
     Active Substance: NOREPINEPHRINE
     Dates: start: 20211127, end: 20211128
  10. ETOMIDATE [Concomitant]
     Active Substance: ETOMIDATE
     Dates: start: 20211127, end: 20211127
  11. ROCURONIUM [Concomitant]
     Active Substance: ROCURONIUM BROMIDE
     Dates: start: 20211127, end: 20211127
  12. VANCOMYCIN [Concomitant]
     Active Substance: VANCOMYCIN
     Dates: start: 20211128, end: 20211128
  13. INSULIN NOS [Concomitant]
     Active Substance: INSULIN NOS
     Dates: start: 20080125
  14. PANTOPRAZOLE [Concomitant]
     Active Substance: PANTOPRAZOLE
     Dates: start: 20211124, end: 20211127
  15. PHENYLEPHRINE [Concomitant]
     Active Substance: PHENYLEPHRINE HYDROCHLORIDE
     Dates: start: 20211128, end: 20211128
  16. ACETAMINOPHEN [Concomitant]
     Active Substance: ACETAMINOPHEN
     Dates: start: 20211120
  17. ALBUMIN HUMAN [Concomitant]
     Active Substance: ALBUMIN HUMAN
     Dates: start: 20211128
  18. CHOLECALCIFEROL [Concomitant]
     Active Substance: CHOLECALCIFEROL
     Dates: start: 20211124, end: 20211128
  19. CALCIUM GLUCONATE [Concomitant]
     Active Substance: CALCIUM GLUCONATE
     Dates: start: 20211128, end: 20211128
  20. ATORVASTATIN [Concomitant]
     Active Substance: ATORVASTATIN
     Dates: start: 20211124, end: 20211128

REACTIONS (9)
  - Oxygen saturation decreased [None]
  - Staphylococcal bacteraemia [None]
  - Complication associated with device [None]
  - Device related infection [None]
  - Dialysis [None]
  - Respiratory distress [None]
  - Hypotension [None]
  - Hyperkalaemia [None]
  - Blood lactic acid increased [None]

NARRATIVE: CASE EVENT DATE: 20211101
